FAERS Safety Report 5198449-5 (Version None)
Quarter: 2006Q4

REPORT INFORMATION
  Report Type: 
  Country: None (occurrence: None)
  Receive Date: 20061228
  Receipt Date: 20061228
  Transmission Date: 20070319
  Serious: Yes (Life-Threatening, Hospitalization)
  Sender: FDA-Public Use
  Company Number: None

PATIENT
  Age: 59 Year
  Sex: Female
  Weight: 60 kg

DRUGS (8)
  1. VALSARTAN [Suspect]
     Indication: HYPERTENSION
     Dosage: 160 QD
  2. ACIPHEX [Suspect]
     Indication: HIATUS HERNIA
     Dosage: 20 QD
  3. HYDROCHLOROTHIAZIDE [Concomitant]
  4. DIGOXIN [Concomitant]
  5. ALLEGRA-D 12 HOUR [Concomitant]
  6. VIT C [Concomitant]
  7. FOSAMAX [Concomitant]
  8. ALEVE [Concomitant]

REACTIONS (6)
  - CHROMATURIA [None]
  - DECREASED APPETITE [None]
  - JAUNDICE [None]
  - NAUSEA [None]
  - OCULAR ICTERUS [None]
  - WEIGHT DECREASED [None]
